FAERS Safety Report 17164046 (Version 3)
Quarter: 2019Q4

REPORT INFORMATION
  Report Type: Spontaneous
  Country: IT (occurrence: IT)
  Receive Date: 20191217
  Receipt Date: 20191226
  Transmission Date: 20200122
  Serious: Yes (Death)
  Sender: FDA-Public Use
  Company Number: IT-PFIZER INC-2019535089

PATIENT
  Age: 61 Year
  Sex: Male

DRUGS (10)
  1. ARACYTIN [Suspect]
     Active Substance: CYTARABINE
     Indication: B-CELL LYMPHOMA STAGE III
     Dosage: UNK, CYCLIC (3 CYCLES)
     Route: 065
  2. VINCRISTINE SULFATE. [Suspect]
     Active Substance: VINCRISTINE SULFATE
     Indication: B-CELL LYMPHOMA STAGE III
     Dosage: UNK, CYCLIC (6 CYCLES)
     Route: 065
  3. RITUXIMAB. [Suspect]
     Active Substance: RITUXIMAB
     Dosage: UNK, CYCLIC (3 CYCLES)
  4. CISPLATIN. [Suspect]
     Active Substance: CISPLATIN
     Indication: B-CELL LYMPHOMA STAGE III
     Dosage: UNK, CYCLIC (3 CYCLES)
     Route: 065
  5. DOXORUBICIN HCL [Suspect]
     Active Substance: DOXORUBICIN HYDROCHLORIDE
     Indication: B-CELL LYMPHOMA STAGE III
     Dosage: UNK, CYCLIC (6 CYCLES)
     Route: 065
  6. RITUXIMAB. [Suspect]
     Active Substance: RITUXIMAB
     Indication: B-CELL LYMPHOMA STAGE III
     Dosage: UNK, CYCLIC  (6 CYCLES)
     Route: 065
  7. CYCLOPHOSPHAMIDE. [Suspect]
     Active Substance: CYCLOPHOSPHAMIDE
     Indication: B-CELL LYMPHOMA STAGE III
     Dosage: UNK, CYCLIC (6 CYCLES)
     Route: 065
  8. ZEVALIN [Suspect]
     Active Substance: IBRITUMOMAB TIUXETAN
     Indication: B-CELL LYMPHOMA STAGE III
     Dosage: UNK
     Route: 065
  9. DEXAMETHASONE SODIUM PHOSPHATE. [Suspect]
     Active Substance: DEXAMETHASONE SODIUM PHOSPHATE
     Indication: B-CELL LYMPHOMA STAGE III
     Dosage: UNK, CYCLIC (3 CYCLES)
     Route: 065
  10. METHYLPREDNISOLONE. [Suspect]
     Active Substance: METHYLPREDNISOLONE
     Indication: B-CELL LYMPHOMA STAGE III
     Dosage: UNK, CYCLIC (6 CYCLES)
     Route: 065

REACTIONS (4)
  - Second primary malignancy [Fatal]
  - Acute myeloid leukaemia [Fatal]
  - Off label use [Unknown]
  - Product use in unapproved indication [Unknown]
